FAERS Safety Report 7168061-7 (Version None)
Quarter: 2010Q4

REPORT INFORMATION
  Report Type: 
  Country: None (occurrence: None)
  Receive Date: 20101216
  Receipt Date: 20101203
  Transmission Date: 20110411
  Serious: Yes (Other)
  Sender: FDA-Public Use
  Company Number: PHHY2010US58568

PATIENT
  Sex: Male
  Weight: 93 kg

DRUGS (2)
  1. EXJADE [Suspect]
     Indication: HEPATIC NEOPLASM MALIGNANT
     Dosage: 500 MG, TID
     Route: 048
     Dates: start: 20100226
  2. EXJADE [Suspect]
     Dosage: 1000 MG, QD
     Route: 048
     Dates: start: 20100301, end: 20100701

REACTIONS (2)
  - DRUG INTOLERANCE [None]
  - MALAISE [None]
